FAERS Safety Report 11744259 (Version 2)
Quarter: 2015Q4

REPORT INFORMATION
  Report Type: Spontaneous
  Country: JP (occurrence: JP)
  Receive Date: 20151116
  Receipt Date: 20151214
  Transmission Date: 20160304
  Serious: Yes (Hospitalization)
  Sender: FDA-Public Use
  Company Number: JP-SUCAMPO PHARMA AMERICAS, LLC-SPI201501096

PATIENT
  Age: 83 Year
  Sex: Female

DRUGS (7)
  1. CRESTOR [Concomitant]
     Active Substance: ROSUVASTATIN CALCIUM
     Indication: HYPERLIPIDAEMIA
     Dosage: UNK
     Route: 048
  2. UNKNOWN [Concomitant]
     Active Substance: UNSPECIFIED INGREDIENT
     Indication: HYPERTENSION
     Dosage: UNK
     Route: 048
  3. AMITIZA [Suspect]
     Active Substance: LUBIPROSTONE
     Indication: CONSTIPATION
     Dosage: UNK UNK, BID
     Route: 048
     Dates: start: 20151004, end: 20151021
  4. UNKNOWN [Concomitant]
     Active Substance: UNSPECIFIED INGREDIENT
     Indication: PNEUMONIA
     Dosage: UNK
     Route: 042
     Dates: start: 20150909, end: 20151014
  5. AMITIZA [Suspect]
     Active Substance: LUBIPROSTONE
     Dosage: 24 MCG, QD
     Route: 048
     Dates: start: 20151022
  6. UNKNOWN [Concomitant]
     Active Substance: UNSPECIFIED INGREDIENT
     Dosage: UNK
     Route: 042
     Dates: start: 20151021, end: 20151102
  7. UNKNOWN [Suspect]
     Active Substance: UNSPECIFIED INGREDIENT
     Indication: PNEUMONIA
     Dosage: UNK
     Route: 048
     Dates: start: 20151014, end: 20151021

REACTIONS (2)
  - Tubulointerstitial nephritis [Recovering/Resolving]
  - Vomiting [Recovered/Resolved]

NARRATIVE: CASE EVENT DATE: 20151021
